FAERS Safety Report 8847764 (Version 2)
Quarter: 2012Q4

REPORT INFORMATION
  Report Type: Report from Study
  Country: US (occurrence: US)
  Receive Date: 20121018
  Receipt Date: 20121030
  Transmission Date: 20130627
  Serious: Yes (Other)
  Sender: FDA-Public Use
  Company Number: US-US-EMD SERONO, INC.-7167733

PATIENT
  Age: 54 None
  Sex: Male
  Weight: 85 kg

DRUGS (7)
  1. REBIF [Suspect]
     Indication: MULTIPLE SCLEROSIS
     Route: 058
     Dates: start: 20041221
  2. IBUPROFEN [Concomitant]
     Indication: PREMEDICATION
  3. LISINOPRIL [Concomitant]
     Indication: HYPERTENSION
     Route: 048
  4. BACLOFEN [Concomitant]
     Indication: MUSCLE SPASTICITY
  5. CLONAZEPAM [Concomitant]
     Indication: ANXIETY
     Route: 048
  6. CLONAZEPAM [Concomitant]
     Indication: MUSCLE SPASTICITY
  7. TRAZODONE [Concomitant]
     Indication: INSOMNIA
     Route: 048

REACTIONS (5)
  - Haemangioma of liver [Recovered/Resolved]
  - Renal cyst [Recovered/Resolved]
  - Benign prostatic hyperplasia [Recovered/Resolved]
  - Hypertonic bladder [Recovered/Resolved]
  - Injection site erythema [Not Recovered/Not Resolved]
